FAERS Safety Report 23153493 (Version 1)
Quarter: 2023Q4

REPORT INFORMATION
  Report Type: Spontaneous
  Country: US (occurrence: None)
  Receive Date: 20231106
  Receipt Date: 20231106
  Transmission Date: 20240110
  Serious: Yes (Hospitalization, Other)
  Sender: FDA-Public Use
  Company Number: None

PATIENT
  Age: 67 Year
  Sex: Male
  Weight: 89.1 kg

DRUGS (10)
  1. VYVGART [Suspect]
     Active Substance: EFGARTIGIMOD ALFA-FCAB
     Indication: Myasthenia gravis
     Dosage: OTHER FREQUENCY : IV INFUSION ONCE;?
     Route: 042
     Dates: start: 20230609, end: 20231102
  2. INSULIN NOS [Concomitant]
     Active Substance: INSULIN NOS
  3. GLUCOPHAGE [Concomitant]
     Active Substance: METFORMIN HYDROCHLORIDE
  4. GABAPENTIN [Concomitant]
     Active Substance: GABAPENTIN
  5. CELLCEPT [Concomitant]
     Active Substance: MYCOPHENOLATE MOFETIL
  6. UNSPECIFIED INGREDIENT [Concomitant]
     Active Substance: UNSPECIFIED INGREDIENT
  7. BACTRIM [Concomitant]
     Active Substance: SULFAMETHOXAZOLE\TRIMETHOPRIM
  8. Imatrex [Concomitant]
  9. VITAMIN D NOS [Concomitant]
     Active Substance: VITAMIN D NOS
  10. CALCIUM [Concomitant]
     Active Substance: CALCIUM

REACTIONS (8)
  - Pyrexia [None]
  - Tremor [None]
  - Chills [None]
  - Mental disorder [None]
  - Delirium [None]
  - Infusion related reaction [None]
  - Headache [None]
  - Confusional state [None]

NARRATIVE: CASE EVENT DATE: 20231102
